FAERS Safety Report 10951639 (Version 2)
Quarter: 2015Q2

REPORT INFORMATION
  Report Type: Spontaneous
  Country: US (occurrence: US)
  Receive Date: 20150324
  Receipt Date: 20150525
  Transmission Date: 20150821
  Serious: Yes (Other)
  Sender: FDA-Public Use
  Company Number: US-JNJFOC-20120808540

PATIENT
  Age: 42 Year
  Sex: Male
  Weight: 99.79 kg

DRUGS (3)
  1. OMEGA-3 ACIDS [Concomitant]
     Active Substance: OMEGA-3 FATTY ACIDS
     Indication: NUTRITIONAL SUPPLEMENTATION
     Route: 065
  2. MULTIVITAMINS [Concomitant]
     Active Substance: VITAMINS
     Indication: NUTRITIONAL SUPPLEMENTATION
     Route: 065
  3. RISPERIDONE. [Suspect]
     Active Substance: RISPERIDONE
     Indication: PRODUCT USED FOR UNKNOWN INDICATION
     Route: 048
     Dates: start: 2011

REACTIONS (5)
  - Weight increased [Not Recovered/Not Resolved]
  - Hypersomnia [Unknown]
  - Adverse event [Not Recovered/Not Resolved]
  - Lethargy [Recovered/Resolved]
  - Blood pressure [Not Recovered/Not Resolved]

NARRATIVE: CASE EVENT DATE: 2011
